FAERS Safety Report 8589090-2 (Version None)
Quarter: 2012Q3

REPORT INFORMATION
  Report Type: 
  Country: None (occurrence: None)
  Receive Date: 20120813
  Receipt Date: 20120730
  Transmission Date: 20120928
  Serious: No
  Sender: FDA-Public Use
  Company Number: US-BAYER-2012-076854

PATIENT
  Age: 88 Year
  Sex: Female
  Weight: 60.317 kg

DRUGS (4)
  1. ANTIHYPERTENSIVES [Concomitant]
  2. ALEVE (CAPLET) [Suspect]
     Indication: BACK PAIN
     Dosage: 2 DF, QD
     Route: 048
     Dates: start: 20120715, end: 20120724
  3. LEVOTHYROXINE SODIUM [Concomitant]
  4. RADIATION PATCH IN EYE [Concomitant]

REACTIONS (1)
  - ABDOMINAL PAIN UPPER [None]
